FAERS Safety Report 6702545-8 (Version None)
Quarter: 2010Q2

REPORT INFORMATION
  Report Type: 
  Country: None (occurrence: None)
  Receive Date: 20100429
  Receipt Date: 20100416
  Transmission Date: 20101027
  Serious: Yes (Hospitalization)
  Sender: FDA-Public Use
  Company Number: ES-ELI_LILLY_AND_COMPANY-ES201004004486

PATIENT
  Sex: Female
  Weight: 85 kg

DRUGS (6)
  1. FORTEO [Suspect]
     Indication: OSTEOPOROSIS
     Dosage: 20 UG, DAILY (1/D)
     Route: 058
     Dates: start: 20080401, end: 20100409
  2. OMEPRAZOLE [Concomitant]
     Indication: GASTRIC DISORDER
     Dosage: UNK, UNKNOWN
     Route: 048
  3. TRANXILIUM [Concomitant]
     Indication: ANXIETY
     Dosage: UNK, UNKNOWN
     Route: 048
  4. SEGURIL [Concomitant]
     Indication: OEDEMA
     Dosage: UNK, UNKNOWN
     Route: 048
     Dates: start: 20100408
  5. CHOLESTEROL- AND TRIGLYCERIDE REDUCERS [Concomitant]
     Indication: HYPERCHOLESTEROLAEMIA
     Dosage: UNK, UNKNOWN
     Route: 065
  6. ANTIHYPERTENSIVES [Concomitant]
     Indication: HYPERTENSION
     Dosage: UNK, UNKNOWN
     Route: 065

REACTIONS (2)
  - FEMUR FRACTURE [None]
  - HIP FRACTURE [None]
